FAERS Safety Report 9800917 (Version 1)
Quarter: 2014Q1

REPORT INFORMATION
  Report Type: Spontaneous
  Country: US (occurrence: US)
  Receive Date: 20140107
  Receipt Date: 20140107
  Transmission Date: 20141002
  Serious: No
  Sender: FDA-Public Use
  Company Number: US-PFIZER INC-2014001128

PATIENT
  Age: 16 Year
  Sex: Male

DRUGS (1)
  1. CAMPTOSAR [Suspect]
     Indication: BONE CANCER
     Dosage: 140MG DAILY X 5 DAYS Q 3 WEEKS
     Dates: start: 20131011

REACTIONS (3)
  - Disease progression [Unknown]
  - Bone cancer [Unknown]
  - Off label use [Unknown]
